FAERS Safety Report 20918453 (Version 1)
Quarter: 2022Q2

REPORT INFORMATION
  Report Type: Spontaneous
  Country: US (occurrence: None)
  Receive Date: 20220603
  Receipt Date: 20220603
  Transmission Date: 20220721
  Serious: No
  Sender: FDA-Public Use
  Company Number: None

PATIENT
  Sex: Female

DRUGS (1)
  1. OPSUMIT [Suspect]
     Active Substance: MACITENTAN
     Indication: Pulmonary arterial hypertension
     Dosage: 10MG ONCE DAILY ORAL?
     Route: 048
     Dates: start: 202109

REACTIONS (4)
  - Pneumonia [None]
  - Productive cough [None]
  - Sputum discoloured [None]
  - Breath odour [None]
